FAERS Safety Report 9458332 (Version 1)
Quarter: 2013Q3

REPORT INFORMATION
  Report Type: Spontaneous
  Country: AU (occurrence: AU)
  Receive Date: 20130814
  Receipt Date: 20130814
  Transmission Date: 20140515
  Serious: Yes (Other)
  Sender: FDA-Public Use
  Company Number: AU-PFIZER INC-2013233202

PATIENT
  Age: 37 Year
  Sex: Male
  Weight: 87 kg

DRUGS (3)
  1. TOBRAMYCIN [Suspect]
     Dosage: 360 MG, 1X/DAY
     Route: 042
     Dates: start: 19880823, end: 19880903
  2. VANCOMYCIN HCL [Suspect]
     Dosage: 2 G, 1X/DAY
     Route: 042
     Dates: start: 19880820, end: 19880903
  3. AMPHOTERICIN B [Suspect]
     Dosage: 20 MG, 1X/DAY
     Route: 042
     Dates: start: 19880826, end: 19880901

REACTIONS (1)
  - Renal impairment [Unknown]
